FAERS Safety Report 24975094 (Version 2)
Quarter: 2025Q3

REPORT INFORMATION
  Report Type: Report from Study
  Country: US (occurrence: None)
  Receive Date: 20250217
  Receipt Date: 20250810
  Transmission Date: 20251020
  Serious: Yes (Hospitalization, Other)
  Sender: ALEXION PHARMACEUTICALS
  Company Number: US-AstraZeneca-2014SE40827

PATIENT
  Age: 80 Year
  Sex: Female
  Weight: 49.895 kg

DRUGS (4)
  1. NEXIUM [Suspect]
     Active Substance: ESOMEPRAZOLE MAGNESIUM
     Indication: Hiatus hernia
     Dosage: 20 MILLIGRAM, QD
     Dates: start: 2011
  2. NEXIUM [Suspect]
     Active Substance: ESOMEPRAZOLE MAGNESIUM
     Indication: Dyspepsia
  3. PRILOSEC [Suspect]
     Active Substance: OMEPRAZOLE MAGNESIUM
     Indication: Dyspepsia
  4. ATENOLOL [Suspect]
     Active Substance: ATENOLOL
     Route: 065

REACTIONS (13)
  - Pneumonia [Unknown]
  - Weight decreased [Unknown]
  - Back injury [Unknown]
  - Fall [Recovered/Resolved]
  - Dyspepsia [Unknown]
  - Eye contusion [Unknown]
  - Decreased appetite [Unknown]
  - Accident [Unknown]
  - Food intolerance [Unknown]
  - Hypoacusis [Not Recovered/Not Resolved]
  - Dyspepsia [Unknown]
  - Intentional product misuse [Unknown]
  - Drug ineffective [Unknown]

NARRATIVE: CASE EVENT DATE: 20110101
